FAERS Safety Report 21314990 (Version 1)
Quarter: 2022Q3

REPORT INFORMATION
  Report Type: Spontaneous
  Country: US (occurrence: None)
  Receive Date: 20220909
  Receipt Date: 20220909
  Transmission Date: 20221027
  Serious: Yes (Death)
  Sender: FDA-Public Use
  Company Number: None

PATIENT
  Age: 84 Year
  Sex: Female
  Weight: 69.9 kg

DRUGS (17)
  1. CAPECITABINE [Suspect]
     Active Substance: CAPECITABINE
     Indication: Breast cancer female
     Dosage: OTHER FREQUENCY : Q12 HOURS;?
     Route: 048
  2. AMLODIPINE BESYLATE [Concomitant]
  3. ASCORBIC ACID [Concomitant]
  4. ASPIRIN [Concomitant]
     Active Substance: ASPIRIN
  5. ATORVASTATIN [Concomitant]
  6. CINNAMON [Concomitant]
  7. COCONUT OIL [Concomitant]
     Active Substance: COCONUT OIL
  8. FISH OIL EXTRA STRENGTH FLAX [Concomitant]
  9. GINGER [Concomitant]
  10. GINSING [Concomitant]
  11. GLUCOSAMINE [Concomitant]
  12. 1500 COMPLEX [Concomitant]
  13. LOSARTAN [Concomitant]
  14. POTASSIUM [Concomitant]
     Active Substance: POTASSIUM
  15. MELOXICAM [Concomitant]
  16. VITAMIN D [Concomitant]
  17. VITAMIN E COMPLEX [Concomitant]

REACTIONS (1)
  - Death [None]
